FAERS Safety Report 12329589 (Version 1)
Quarter: 2016Q2

REPORT INFORMATION
  Report Type: Spontaneous
  Country: US (occurrence: US)
  Receive Date: 20160503
  Receipt Date: 20160503
  Transmission Date: 20160815
  Serious: No
  Sender: FDA-Public Use
  Company Number: US-PERRIGO-16US014960

PATIENT
  Sex: Female

DRUGS (1)
  1. TRIAMCINOLONE ACETONIDE. [Suspect]
     Active Substance: TRIAMCINOLONE ACETONIDE
     Indication: ACCIDENTAL EXPOSURE TO PRODUCT
     Dosage: 1 SPRAY, SINGLE
     Route: 045
     Dates: start: 20160405, end: 20160405

REACTIONS (2)
  - Drug dispensing error [Recovered/Resolved]
  - Incorrect route of drug administration [Recovered/Resolved]

NARRATIVE: CASE EVENT DATE: 20160405
